FAERS Safety Report 4997042-4 (Version None)
Quarter: 2006Q1

REPORT INFORMATION
  Report Type: 
  Country: None (occurrence: None)
  Receive Date: 20060315
  Receipt Date: 20051216
  Transmission Date: 20060701
  Serious: Yes (Other)
  Sender: FDA-Public Use
  Company Number: 429292

PATIENT
  Sex: Female

DRUGS (1)
  1. BONIVA [Suspect]
     Dosage: 1 PER MONTH
     Dates: start: 20051115

REACTIONS (4)
  - DIARRHOEA [None]
  - FACIAL PAIN [None]
  - HEADACHE [None]
  - PAIN IN JAW [None]
